FAERS Safety Report 24268904 (Version 1)
Quarter: 2024Q3

REPORT INFORMATION
  Report Type: Spontaneous
  Country: US (occurrence: US)
  Receive Date: 20240830
  Receipt Date: 20240830
  Transmission Date: 20241017
  Serious: Yes (Other)
  Sender: MYLAN
  Company Number: US-MYLANLABS-2024M1080084

PATIENT
  Age: 49 Year
  Sex: Female

DRUGS (5)
  1. FLUOROURACIL [Suspect]
     Active Substance: FLUOROURACIL
     Indication: Solid pseudopapillary tumour of the pancreas
     Dosage: UNK, CYCLE; 3 CYCLES
     Route: 065
  2. OXALIPLATIN [Suspect]
     Active Substance: OXALIPLATIN
     Indication: Solid pseudopapillary tumour of the pancreas
     Dosage: UNK, CYCLE; 3 CYCLES
     Route: 065
  3. GEMCITABINE [Suspect]
     Active Substance: GEMCITABINE
     Indication: Solid pseudopapillary tumour of the pancreas
     Dosage: UNK, Q2W; FOR 16 MONTHS
     Route: 065
  4. PEMBROLIZUMAB [Suspect]
     Active Substance: PEMBROLIZUMAB
     Indication: Solid pseudopapillary tumour of the pancreas
     Dosage: UNK, CYCLE; 11 CYCLES
     Route: 065
  5. LEUCOVORIN [Suspect]
     Active Substance: LEUCOVORIN\LEUCOVORIN CALCIUM
     Indication: Solid pseudopapillary tumour of the pancreas
     Dosage: UNK, CYCLE; 3 CYCLES
     Route: 065

REACTIONS (1)
  - Drug ineffective [Unknown]
